FAERS Safety Report 17061541 (Version 6)
Quarter: 2021Q3

REPORT INFORMATION
  Report Type: Report from Study
  Country: US (occurrence: US)
  Receive Date: 20191121
  Receipt Date: 20210825
  Transmission Date: 20211014
  Serious: Yes (Hospitalization)
  Sender: FDA-Public Use
  Company Number: US-EISAI MEDICAL RESEARCH-EC-2019-065382

PATIENT
  Age: 71 Year
  Sex: Female
  Weight: 68.03 kg

DRUGS (35)
  1. LENVIMA [Suspect]
     Active Substance: LENVATINIB
     Indication: GASTROENTERITIS
     Route: 048
     Dates: start: 2020, end: 202107
  2. AFINITOR [Concomitant]
     Active Substance: EVEROLIMUS
  3. HYDRALAZINE HCL [Concomitant]
     Active Substance: HYDRALAZINE HYDROCHLORIDE
  4. LENVIMA [Suspect]
     Active Substance: LENVATINIB
     Indication: PARAPSORIASIS
     Route: 048
     Dates: start: 2020, end: 202003
  5. LENVIMA [Suspect]
     Active Substance: LENVATINIB
     Indication: RENAL CANCER
     Route: 048
     Dates: start: 2020, end: 2020
  6. VITAMIN C [Concomitant]
     Active Substance: ASCORBIC ACID
  7. PANTOPRAZOLE SODIUM. [Concomitant]
     Active Substance: PANTOPRAZOLE SODIUM
  8. ONDANSETRON HCL [Concomitant]
     Active Substance: ONDANSETRON HYDROCHLORIDE
  9. ELIQUIS [Concomitant]
     Active Substance: APIXABAN
  10. HYDROCHLOROTHIAZIDE. [Concomitant]
     Active Substance: HYDROCHLOROTHIAZIDE
  11. DRONABINOL. [Concomitant]
     Active Substance: DRONABINOL
  12. LENVIMA [Suspect]
     Active Substance: LENVATINIB
     Indication: HYPOTHYROIDISM
  13. COLACE [Concomitant]
     Active Substance: DOCUSATE SODIUM
  14. LOSARTAN POTASSIUM. [Concomitant]
     Active Substance: LOSARTAN POTASSIUM
  15. LEVEMIR [Concomitant]
     Active Substance: INSULIN DETEMIR
  16. ISOSORBIDE MONONITRATE. [Concomitant]
     Active Substance: ISOSORBIDE MONONITRATE
  17. LEVOTHYROXINE SODIUM. [Concomitant]
     Active Substance: LEVOTHYROXINE SODIUM
  18. LOMOTIL [Concomitant]
     Active Substance: ATROPINE SULFATE\DIPHENOXYLATE HYDROCHLORIDE
  19. FUROSEMIDE. [Concomitant]
     Active Substance: FUROSEMIDE
  20. VITAMIN B12 [Concomitant]
     Active Substance: CYANOCOBALAMIN
  21. LENVIMA [Suspect]
     Active Substance: LENVATINIB
     Indication: RENAL CANCER
     Route: 048
     Dates: start: 20190730, end: 201912
  22. MULTIVITAMIN [Concomitant]
     Active Substance: VITAMINS
  23. AMLODIPINE [Concomitant]
     Active Substance: AMLODIPINE BESYLATE
  24. LENVIMA [Suspect]
     Active Substance: LENVATINIB
     Indication: METASTASES TO BONE
     Route: 048
     Dates: end: 20200214
  25. IRON 325 [Concomitant]
  26. PROBIOTIC 10B CELL [Concomitant]
  27. OXYCONTIN [Concomitant]
     Active Substance: OXYCODONE HYDROCHLORIDE
  28. CALCIUM + D3 [Concomitant]
     Active Substance: CALCIUM\CHOLECALCIFEROL
  29. VITAMIN B12 [Concomitant]
     Active Substance: CYANOCOBALAMIN
  30. XGEVA [Concomitant]
     Active Substance: DENOSUMAB
  31. CARVEDILOL. [Concomitant]
     Active Substance: CARVEDILOL
  32. VITAMIN B?100 COMPLEX [Concomitant]
  33. OXYCODONE?ACETAMINOPHEN [Concomitant]
     Active Substance: ACETAMINOPHEN\OXYCODONE HYDROCHLORIDE
  34. MAGNESIUM OXIDE. [Concomitant]
     Active Substance: MAGNESIUM OXIDE
  35. IMODIUM [Concomitant]
     Active Substance: LOPERAMIDE HYDROCHLORIDE

REACTIONS (16)
  - Vomiting [Not Recovered/Not Resolved]
  - Diarrhoea [Unknown]
  - Renal failure [Unknown]
  - Dehydration [Unknown]
  - Gastrointestinal disorder [Unknown]
  - Pleural effusion [Unknown]
  - Infection [Unknown]
  - Blood pressure increased [Unknown]
  - Pericardial effusion [Unknown]
  - Arthralgia [Unknown]
  - Gait disturbance [Unknown]
  - Nasopharyngitis [Unknown]
  - Bone pain [Unknown]
  - Bowel movement irregularity [Unknown]
  - Malaise [Unknown]
  - Liver abscess [Unknown]

NARRATIVE: CASE EVENT DATE: 2019
